FAERS Safety Report 5819846-8 (Version None)
Quarter: 2008Q3

REPORT INFORMATION
  Report Type: 
  Country: None (occurrence: None)
  Receive Date: 20080723
  Receipt Date: 20080711
  Transmission Date: 20090109
  Serious: Yes (Other)
  Sender: FDA-Public Use
  Company Number: KR-PFIZER INC-2008059768

PATIENT
  Age: 53 Year
  Sex: Male

DRUGS (1)
  1. VIAGRA [Suspect]
     Route: 048

REACTIONS (8)
  - CAPILLARY DISORDER [None]
  - CATARACT [None]
  - DYSPNOEA [None]
  - EYE DISORDER [None]
  - FLUSHING [None]
  - HYPOACUSIS [None]
  - NASAL CONGESTION [None]
  - PALPITATIONS [None]
